FAERS Safety Report 8252146-8 (Version None)
Quarter: 2012Q2

REPORT INFORMATION
  Report Type: 
  Country: None (occurrence: None)
  Receive Date: 20120402
  Receipt Date: 20110620
  Transmission Date: 20120825
  Serious: No
  Sender: FDA-Public Use
  Company Number: US-ABBOTT-11P-163-0733669-00

PATIENT
  Sex: Male

DRUGS (8)
  1. NEXIUM [Concomitant]
     Indication: GASTROOESOPHAGEAL REFLUX DISEASE
  2. PLAVIX [Concomitant]
     Indication: CORONARY ARTERY DISEASE
  3. SOMA [Concomitant]
     Indication: ARTHRITIS
  4. AMITRIPTYLINE HCL [Concomitant]
     Indication: DEPRESSION
  5. XANAX [Concomitant]
     Indication: ANXIETY
  6. ASPIRIN [Concomitant]
     Indication: CARDIAC DISORDER
     Dosage: 81 MG
  7. ANDROGEL [Suspect]
     Indication: BLOOD TESTOSTERONE DECREASED
     Route: 061
     Dates: start: 20110420
  8. SOMA [Concomitant]
     Indication: MUSCLE SPASMS

REACTIONS (1)
  - FATIGUE [None]
